FAERS Safety Report 8525322-4 (Version None)
Quarter: 2012Q3

REPORT INFORMATION
  Report Type: 
  Country: None (occurrence: None)
  Receive Date: 20120720
  Receipt Date: 20120718
  Transmission Date: 20120928
  Serious: Yes (Other)
  Sender: FDA-Public Use
  Company Number: PHHY2012AU061661

PATIENT
  Sex: Female

DRUGS (4)
  1. CARTIA XT [Concomitant]
     Dosage: ONCE IN THE MORNING
     Route: 048
  2. ZOLEDRONOC ACID [Suspect]
     Dosage: 5 MG, UNK
     Dates: start: 20090408
  3. PERINDOPRIL ERBUMINE [Concomitant]
     Dosage: 2.5 MG AT NIGHT
     Route: 048
  4. MINIPRESS [Concomitant]
     Dosage: 2 MG, TID
     Route: 048

REACTIONS (4)
  - HYDROCEPHALUS [None]
  - SPINAL OSTEOARTHRITIS [None]
  - MYOCARDIAL INFARCTION [None]
  - TROPONIN INCREASED [None]
